FAERS Safety Report 18582463 (Version 5)
Quarter: 2021Q3

REPORT INFORMATION
  Report Type: Report from Study
  Country: US (occurrence: US)
  Receive Date: 20201205
  Receipt Date: 20210917
  Transmission Date: 20211014
  Serious: Yes (Other)
  Sender: FDA-Public Use
  Company Number: NVSC2020US322316

PATIENT
  Age: 76 Year
  Sex: Female

DRUGS (2)
  1. TAFINLAR [Suspect]
     Active Substance: DABRAFENIB MESYLATE
     Indication: THYROID CANCER
     Dosage: 50 MG, BID
     Route: 048
  2. MEKINIST [Suspect]
     Active Substance: TRAMETINIB DIMETHYL SULFOXIDE
     Indication: THYROID CANCER
     Dosage: 1 MG, QD
     Route: 048

REACTIONS (8)
  - Throat cancer [Unknown]
  - Dysphagia [Unknown]
  - Macular degeneration [Unknown]
  - Blindness unilateral [Unknown]
  - Wrong technique in product usage process [Unknown]
  - Thyroid cancer [Unknown]
  - Ovarian cancer [Unknown]
  - Second primary malignancy [Unknown]

NARRATIVE: CASE EVENT DATE: 20201202
